FAERS Safety Report 10962295 (Version 4)
Quarter: 2020Q1

REPORT INFORMATION
  Report Type: Spontaneous
  Country: US (occurrence: US)
  Receive Date: 20150327
  Receipt Date: 20200320
  Transmission Date: 20200409
  Serious: Yes (Death, Hospitalization, Other)
  Sender: FDA-Public Use
  Company Number: US-009507513-1503USA013061

PATIENT
  Sex: Female
  Weight: 96.15 kg

DRUGS (1)
  1. JANUMET [Suspect]
     Active Substance: METFORMIN HYDROCHLORIDE\SITAGLIPTIN PHOSPHATE
     Dosage: 50/1000 MG, TWICE DAILY
     Route: 048
     Dates: start: 20120214, end: 201301

REACTIONS (28)
  - Impaired gastric emptying [Unknown]
  - Biliary dilatation [Unknown]
  - Pancreatitis chronic [Unknown]
  - Portal vein flow decreased [Unknown]
  - Splenomegaly [Unknown]
  - Metastases to lymph nodes [Unknown]
  - Malignant ascites [Unknown]
  - Escherichia test positive [Unknown]
  - Pyrexia [Unknown]
  - Pancreatic carcinoma metastatic [Fatal]
  - Metastases to lung [Unknown]
  - Lymphadenopathy [Unknown]
  - Liver scan abnormal [Unknown]
  - Tumour invasion [Unknown]
  - Large intestine polyp [Unknown]
  - Postoperative abscess [Recovering/Resolving]
  - Metastases to liver [Unknown]
  - Diverticulum intestinal [Unknown]
  - Anxiety [Unknown]
  - Insomnia [Unknown]
  - Metastases to nervous system [Unknown]
  - Pneumonia [Unknown]
  - Hepatic enzyme abnormal [Recovering/Resolving]
  - Osteoarthritis [Unknown]
  - Blood pressure increased [Unknown]
  - Drain placement [Unknown]
  - Abnormal loss of weight [Unknown]
  - Gastrointestinal tube insertion [Unknown]

NARRATIVE: CASE EVENT DATE: 2012
